FAERS Safety Report 4449319-9 (Version None)
Quarter: 2004Q3

REPORT INFORMATION
  Report Type: 
  Country: None (occurrence: None)
  Receive Date: 20040913
  Receipt Date: 20040830
  Transmission Date: 20050211
  Serious: Yes (Life-Threatening)
  Sender: FDA-Public Use
  Company Number: 2004231254US

PATIENT
  Age: 64 Year
  Sex: Female

DRUGS (3)
  1. CELEBREX [Suspect]
     Indication: BACK PAIN
     Dosage: 100 MG, BID
  2. ROFECOXIB ROFECOXIB) TABLET [Suspect]
     Indication: BACK PAIN
     Dosage: 25 MG QD
  3. ATORVASTATIN CALCIUM [Concomitant]

REACTIONS (5)
  - ACUTE PULMONARY OEDEMA [None]
  - ACUTE RESPIRATORY FAILURE [None]
  - HYPERTENSIVE CARDIOMYOPATHY [None]
  - MEDICATION ERROR [None]
  - RESPIRATORY ACIDOSIS [None]
